FAERS Safety Report 10154583 (Version 1)
Quarter: 2014Q2

REPORT INFORMATION
  Report Type: Spontaneous
  Country: US (occurrence: US)
  Receive Date: 20140506
  Receipt Date: 20140506
  Transmission Date: 20141212
  Serious: Yes (Other)
  Sender: FDA-Public Use
  Company Number: US-PFIZER INC-2014122998

PATIENT
  Age: 59 Year
  Sex: Female
  Weight: 68.03 kg

DRUGS (2)
  1. LYRICA [Suspect]
     Indication: NEURALGIA
     Dosage: 200 MG, 2X/DAY
  2. MORPHINE SULPHATE [Concomitant]
     Indication: PAIN
     Dosage: 15 MG, 3X/DAY

REACTIONS (7)
  - Drug dependence [Unknown]
  - Anxiety [Unknown]
  - Weight increased [Unknown]
  - Depression [Unknown]
  - Insomnia [Unknown]
  - Panic attack [Unknown]
  - Irritability [Unknown]
